FAERS Safety Report 6097176-X (Version None)
Quarter: 2009Q1

REPORT INFORMATION
  Report Type: 
  Country: None (occurrence: None)
  Receive Date: 20090227
  Receipt Date: 20090223
  Transmission Date: 20090719
  Serious: Yes (Other)
  Sender: FDA-Public Use
  Company Number: A0755424A

PATIENT
  Age: 32 Year
  Sex: Female
  Weight: 62.7 kg

DRUGS (5)
  1. ARIXTRA [Suspect]
     Indication: ANTIPHOSPHOLIPID ANTIBODIES
     Dosage: 2.5MG PER DAY
     Route: 058
     Dates: start: 20080501, end: 20081101
  2. VITAMIN TAB [Concomitant]
  3. CALCIUM [Concomitant]
  4. ASPIRIN [Concomitant]
  5. EPIDURAL [Concomitant]

REACTIONS (4)
  - DRUG EXPOSURE DURING PREGNANCY [None]
  - LIVE BIRTH [None]
  - VAGINAL HAEMORRHAGE [None]
  - VAGINAL LACERATION [None]
